FAERS Safety Report 7790438-7 (Version None)
Quarter: 2011Q3

REPORT INFORMATION
  Report Type: 
  Country: None (occurrence: None)
  Receive Date: 20110930
  Receipt Date: 20110924
  Transmission Date: 20111222
  Serious: Yes (Other)
  Sender: FDA-Public Use
  Company Number: DE-B.I. PHARMACEUTICALS,INC./RIDGEFIELD-2011-DE-03662DE

PATIENT
  Sex: Male

DRUGS (2)
  1. MICARDIS [Suspect]
     Dosage: 80 MG
     Route: 048
  2. GALANTAMINE HYDROBROMIDE [Suspect]
     Dosage: 40 MG
     Route: 048

REACTIONS (4)
  - HYPERTENSION [None]
  - HEADACHE [None]
  - MEDICATION ERROR [None]
  - VOMITING [None]
